FAERS Safety Report 6387734-7 (Version None)
Quarter: 2009Q4

REPORT INFORMATION
  Report Type: 
  Country: None (occurrence: None)
  Receive Date: 20091005
  Receipt Date: 20090929
  Transmission Date: 20100525
  Serious: Yes (Disabling)
  Sender: FDA-Public Use
  Company Number: CZ-ROCHE-659409

PATIENT
  Sex: Female

DRUGS (3)
  1. CAPECITABINE [Suspect]
     Indication: COLORECTAL CANCER
     Route: 065
     Dates: start: 20081204
  2. BEVACIZUMAB [Suspect]
     Indication: COLORECTAL CANCER
     Dosage: SINGLE DOSE: 400 MG
     Route: 065
     Dates: start: 20081204
  3. OXALIPLATIN [Suspect]
     Indication: COLORECTAL CANCER
     Route: 065
     Dates: start: 20081204

REACTIONS (3)
  - LARYNGOSPASM [None]
  - NEUROTOXICITY [None]
  - STRIDOR [None]
